FAERS Safety Report 8231406-0 (Version None)
Quarter: 2012Q1

REPORT INFORMATION
  Report Type: 
  Country: None (occurrence: None)
  Receive Date: 20120323
  Receipt Date: 20120316
  Transmission Date: 20120608
  Serious: Yes (Death, Hospitalization)
  Sender: FDA-Public Use
  Company Number: JP-SANOFI-AVENTIS-2012SA017474

PATIENT
  Age: 75 Year
  Sex: Male
  Weight: 58 kg

DRUGS (7)
  1. DOCETAXEL [Suspect]
     Indication: PROSTATE CANCER
     Route: 042
     Dates: start: 20120216
  2. DEXAMETHASONE SODIUM PHOSPHATE [Concomitant]
  3. FAMOTIDINE [Concomitant]
     Route: 048
     Dates: start: 20100308
  4. BIO THREE [Concomitant]
     Route: 048
     Dates: start: 20110301
  5. DEXAMETHASONE [Concomitant]
     Route: 048
     Dates: start: 20110519
  6. DOCETAXEL [Suspect]
     Route: 042
     Dates: start: 20120301, end: 20120301
  7. FLIVAS [Concomitant]
     Route: 048
     Dates: start: 20080728

REACTIONS (6)
  - RESPIRATORY FAILURE [None]
  - DECREASED APPETITE [None]
  - DIARRHOEA [None]
  - VOMITING [None]
  - INTERSTITIAL LUNG DISEASE [None]
  - DYSPNOEA [None]
